FAERS Safety Report 7806565-1 (Version None)
Quarter: 2011Q4

REPORT INFORMATION
  Report Type: 
  Country: None (occurrence: None)
  Receive Date: 20111007
  Receipt Date: 20111007
  Transmission Date: 20120403
  Serious: Yes (Hospitalization)
  Sender: FDA-Public Use
  Company Number: None

PATIENT
  Age: 26 Year
  Sex: Female
  Weight: 87.2 kg

DRUGS (7)
  1. PERCOCET [Concomitant]
  2. AVASTIN [Suspect]
     Indication: COLORECTAL CANCER
     Dosage: 5MG/KG-EVERY TWO WEEKS
     Dates: start: 20110815
  3. AVASTIN [Suspect]
     Indication: COLORECTAL CANCER
     Dosage: 5MG/KG-EVERY TWO WEEKS
     Dates: start: 20110912
  4. FOLFOX [Concomitant]
  5. RAD001 [Concomitant]
  6. IMODIUM [Concomitant]
  7. ELMA CREAM [Concomitant]

REACTIONS (2)
  - PULMONARY EMBOLISM [None]
  - PLEURAL EFFUSION [None]
